FAERS Safety Report 16868853 (Version 1)
Quarter: 2019Q3

REPORT INFORMATION
  Report Type: Report from Study
  Country: None (occurrence: US)
  Receive Date: 20190930
  Receipt Date: 20190930
  Transmission Date: 20191005
  Serious: Yes (Other)
  Sender: FDA-Public Use
  Company Number: US-ABBVIE-19K-163-2937489-00

PATIENT
  Sex: Female

DRUGS (1)
  1. CREON [Suspect]
     Active Substance: PANCRELIPASE AMYLASE\PANCRELIPASE LIPASE\PANCRELIPASE PROTEASE
     Indication: PRODUCT USED FOR UNKNOWN INDICATION
     Route: 065

REACTIONS (9)
  - Oesophageal stenosis [Unknown]
  - Type 2 diabetes mellitus [Unknown]
  - Mobility decreased [Unknown]
  - Gastrooesophageal reflux disease [Unknown]
  - Asthma [Unknown]
  - Metabolic surgery [Unknown]
  - Osteoporosis [Unknown]
  - Gastric bypass [Unknown]
  - Spinal fracture [Unknown]

NARRATIVE: CASE EVENT DATE: 2015
